FAERS Safety Report 6329451-5 (Version None)
Quarter: 2009Q3

REPORT INFORMATION
  Report Type: 
  Country: None (occurrence: None)
  Receive Date: 20090826
  Receipt Date: 20090820
  Transmission Date: 20100115
  Serious: Yes (Life-Threatening, Hospitalization)
  Sender: FDA-Public Use
  Company Number: B0590071A

PATIENT
  Age: 40 Year
  Sex: Male

DRUGS (1)
  1. FORTUM [Suspect]
     Indication: INFECTION
     Dosage: 2G TWICE PER DAY
     Route: 042
     Dates: start: 20090727, end: 20090807

REACTIONS (3)
  - EXCORIATION [None]
  - RASH [None]
  - TOXIC EPIDERMAL NECROLYSIS [None]
